FAERS Safety Report 6528619-2 (Version None)
Quarter: 2010Q1

REPORT INFORMATION
  Report Type: 
  Country: None (occurrence: None)
  Receive Date: 20100105
  Receipt Date: 20100105
  Transmission Date: 20100710
  Serious: Yes (Other)
  Sender: FDA-Public Use
  Company Number: None

PATIENT
  Age: 61 Year
  Sex: Male
  Weight: 106.5953 kg

DRUGS (1)
  1. TYLENOL (CAPLET) [Suspect]
     Indication: ARTHRITIS
     Dosage: 2 CAPLETS EVERY 8 HRS PO
     Route: 048
     Dates: start: 20091101, end: 20091120

REACTIONS (2)
  - HERPES ZOSTER [None]
  - PRODUCT QUALITY ISSUE [None]
